FAERS Safety Report 24968654 (Version 1)
Quarter: 2025Q1

REPORT INFORMATION
  Report Type: Spontaneous
  Country: US (occurrence: US)
  Receive Date: 20250214
  Receipt Date: 20250214
  Transmission Date: 20250408
  Serious: Yes (Hospitalization, Other)
  Sender: AUROBINDO
  Company Number: US-MLMSERVICE-20250130-PI370598-00221-2

PATIENT
  Age: 68 Year
  Sex: Female

DRUGS (19)
  1. CLOZAPINE [Interacting]
     Active Substance: CLOZAPINE
     Indication: Schizophrenia
     Dosage: 75 MILLIGRAM, ONCE A DAY
     Route: 065
  2. CLOZAPINE [Interacting]
     Active Substance: CLOZAPINE
     Dosage: 100 MILLIGRAM, TWO TIMES A DAY
     Route: 065
  3. CLOZAPINE [Interacting]
     Active Substance: CLOZAPINE
     Dosage: 12.5 MILLIGRAM, TWO TIMES A DAY
     Route: 065
  4. CLOZAPINE [Interacting]
     Active Substance: CLOZAPINE
     Dosage: 25 MILLIGRAM, TWO TIMES A DAY
     Route: 065
  5. CLOZAPINE [Interacting]
     Active Substance: CLOZAPINE
     Dosage: 50 MILLIGRAM, TWO TIMES A DAY
     Route: 065
  6. CLOZAPINE [Interacting]
     Active Substance: CLOZAPINE
     Dosage: 75 MILLIGRAM, TWO TIMES A DAY
     Route: 065
  7. CLOZAPINE [Interacting]
     Active Substance: CLOZAPINE
     Dosage: 25 MILLIGRAM, ONCE A DAY
     Route: 065
  8. CLOZAPINE [Interacting]
     Active Substance: CLOZAPINE
     Dosage: 50 MILLIGRAM, ONCE A DAY
     Route: 065
  9. RISPERIDONE [Interacting]
     Active Substance: RISPERIDONE
     Indication: Schizophrenia
     Dosage: 12 MILLIGRAM, ONCE A DAY (DIVIDED 4 MG IN THE MORNING AND 8 MG IN THE EVENING; TILL DAY-2 OF CROSS-T
     Route: 065
  10. RISPERIDONE [Interacting]
     Active Substance: RISPERIDONE
     Dosage: 3 MILLIGRAM, TWO TIMES A DAY (ON DAY 5 TO DAY )
     Route: 065
  11. RISPERIDONE [Interacting]
     Active Substance: RISPERIDONE
     Route: 065
  12. RISPERIDONE [Interacting]
     Active Substance: RISPERIDONE
     Dosage: 4 MILLIGRAM, TWO TIMES A DAY (ON DAY 3 AND 4)
     Route: 065
  13. RISPERIDONE [Interacting]
     Active Substance: RISPERIDONE
     Dosage: 2 MILLIGRAM, TWO TIMES A DAY (ON DAY 10, BID)
     Route: 065
  14. RISPERIDONE [Interacting]
     Active Substance: RISPERIDONE
     Dosage: 1 MILLIGRAM, TWO TIMES A DAY (ON DAY 11)
     Route: 065
  15. RISPERIDONE [Interacting]
     Active Substance: RISPERIDONE
     Dosage: 0.5 MILLIGRAM, TWO TIMES A DAY (ON DAY 12)
     Route: 065
  16. FLUOXETINE [Interacting]
     Active Substance: FLUOXETINE HYDROCHLORIDE
     Indication: Schizophrenia
     Route: 065
  17. FLUOXETINE [Interacting]
     Active Substance: FLUOXETINE HYDROCHLORIDE
     Dosage: 60 MILLIGRAM, ONCE A DAY
     Route: 065
  18. METOPROLOL [Interacting]
     Active Substance: METOPROLOL
     Indication: Hypertension
     Route: 065
  19. TRAZODONE [Interacting]
     Active Substance: TRAZODONE HYDROCHLORIDE
     Indication: Schizophrenia
     Dosage: 50 MILLIGRAM, ONCE A DAY (NIGHTLY)
     Route: 065

REACTIONS (3)
  - Orthostatic hypotension [Unknown]
  - Antipsychotic drug level increased [Recovered/Resolved]
  - Drug interaction [Unknown]
